FAERS Safety Report 17788112 (Version 2)
Quarter: 2020Q2

REPORT INFORMATION
  Report Type: Spontaneous
  Country: JP (occurrence: JP)
  Receive Date: 20200514
  Receipt Date: 20200518
  Transmission Date: 20200714
  Serious: Yes (Life-Threatening, Other)
  Sender: FDA-Public Use
  Company Number: JP-PFIZER INC-2020190799

PATIENT
  Age: 62 Year
  Sex: Female

DRUGS (6)
  1. BEVACIZUMAB. [Suspect]
     Active Substance: BEVACIZUMAB
     Indication: SMALL CELL CARCINOMA OF THE CERVIX
     Dosage: 15 MG/KG, CYCLIC
  2. CARBOPLATIN. [Suspect]
     Active Substance: CARBOPLATIN
     Indication: DISEASE RECURRENCE
  3. BEVACIZUMAB. [Suspect]
     Active Substance: BEVACIZUMAB
     Indication: DISEASE RECURRENCE
  4. PACLITAXEL. [Suspect]
     Active Substance: PACLITAXEL
     Indication: DISEASE RECURRENCE
     Dosage: 180 MG/M2, CYCLIC
  5. CARBOPLATIN. [Suspect]
     Active Substance: CARBOPLATIN
     Indication: SMALL CELL CARCINOMA OF THE CERVIX
     Dosage: UNK (AUC = 6)
  6. PACLITAXEL. [Suspect]
     Active Substance: PACLITAXEL
     Indication: SMALL CELL CARCINOMA OF THE CERVIX

REACTIONS (3)
  - Pancytopenia [Unknown]
  - Protein urine [Unknown]
  - Hypertension [Unknown]
